FAERS Safety Report 10168908 (Version 1)
Quarter: 2014Q2

REPORT INFORMATION
  Report Type: Spontaneous
  Country: US (occurrence: None)
  Receive Date: 20140509
  Receipt Date: 20140509
  Transmission Date: 20141212
  Serious: Yes (Hospitalization)
  Sender: FDA-Public Use
  Company Number: UTC-048123

PATIENT
  Age: 73 Year
  Sex: Female
  Weight: 98.88 kg

DRUGS (2)
  1. REMODULIN (5 MILLIGRAM/MILLILITERS, INJECTION FOR INFUSION) (TREPROSTINIL SODIUM) [Suspect]
     Indication: PULMONARY ARTERIAL HYPERTENSION
     Dosage: 27.36 UG/KG (0.019 UG/KG, 1 IN 1 MIN), SUBCUTANEOUS
     Dates: start: 20140227
  2. ADCIRCA (TADALAFIL) [Concomitant]

REACTIONS (1)
  - Pulmonary hypertension [None]
